FAERS Safety Report 24075351 (Version 1)
Quarter: 2024Q3

REPORT INFORMATION
  Report Type: Spontaneous
  Country: ES (occurrence: None)
  Receive Date: 20240710
  Receipt Date: 20240710
  Transmission Date: 20241017
  Serious: Yes (Hospitalization, Other)
  Sender: ASTRAZENECA
  Company Number: 2024A153566

PATIENT
  Age: 72 Year
  Sex: Male

DRUGS (5)
  1. OMEPRAZOLE [Suspect]
     Active Substance: OMEPRAZOLE
     Route: 048
  2. METFORMIN [Suspect]
     Active Substance: METFORMIN HYDROCHLORIDE
  3. ENALAPRIL [Suspect]
     Active Substance: ENALAPRIL
  4. HYDROCHLOROTHIAZIDE [Suspect]
     Active Substance: HYDROCHLOROTHIAZIDE
  5. ASPIRIN [Suspect]
     Active Substance: ASPIRIN

REACTIONS (13)
  - Motor dysfunction [Unknown]
  - Sensory loss [Unknown]
  - Spinal cord compression [Unknown]
  - Metastases to spinal cord [Unknown]
  - Hypoaesthesia [Unknown]
  - Prostatic specific antigen increased [Unknown]
  - Back pain [Unknown]
  - Anuria [Unknown]
  - Prostatic disorder [Unknown]
  - Muscular weakness [Unknown]
  - Abdominal distension [Unknown]
  - Myelopathy [Unknown]
  - Destructive spondyloarthropathy [Unknown]
